FAERS Safety Report 9641034 (Version 1)
Quarter: 2013Q4

REPORT INFORMATION
  Report Type: Spontaneous
  Country: DE (occurrence: DE)
  Receive Date: 20131023
  Receipt Date: 20131023
  Transmission Date: 20140711
  Serious: Yes (Other)
  Sender: FDA-Public Use
  Company Number: DE-PFIZER INC-2013298579

PATIENT
  Age: 66 Year
  Sex: Female

DRUGS (1)
  1. REVATIO [Suspect]
     Dosage: 20 MG, 3X/DAY
     Dates: start: 201308

REACTIONS (4)
  - Dementia [Unknown]
  - Personality disorder [Unknown]
  - Anxiety [Unknown]
  - Insomnia [Unknown]
